FAERS Safety Report 4462819-0 (Version None)
Quarter: 2004Q3

REPORT INFORMATION
  Report Type: 
  Country: None (occurrence: None)
  Receive Date: 20040927
  Receipt Date: 20040910
  Transmission Date: 20050211
  Serious: Yes (Hospitalization)
  Sender: FDA-Public Use
  Company Number: 2004-00518

PATIENT
  Age: 47 Year
  Sex: Male
  Weight: 145.1 kg

DRUGS (6)
  1. INTEGRILIN [Suspect]
     Indication: CORONARY ANGIOPLASTY
     Dosage: 180.00 MG/KG, IV  BOLUS; 2.00 MG/KG, IV DRIP
     Route: 042
     Dates: start: 20040831, end: 20040831
  2. INTEGRILIN [Suspect]
     Indication: CORONARY ANGIOPLASTY
     Dosage: 180.00 MG/KG, IV  BOLUS; 2.00 MG/KG, IV DRIP
     Route: 042
     Dates: start: 20040831, end: 20040831
  3. HEPARIN [Concomitant]
  4. COREG [Concomitant]
  5. ASPIRIN [Concomitant]
  6. ACCUPRIL [Concomitant]

REACTIONS (3)
  - CARDIAC ARREST [None]
  - HAEMOPTYSIS [None]
  - PULMONARY ALVEOLAR HAEMORRHAGE [None]
